FAERS Safety Report 7048962-0 (Version None)
Quarter: 2010Q4

REPORT INFORMATION
  Report Type: 
  Country: None (occurrence: None)
  Receive Date: 20101008
  Receipt Date: 20100922
  Transmission Date: 20110411
  Serious: Yes (Other)
  Sender: FDA-Public Use
  Company Number: 019606

PATIENT
  Age: 79 Year
  Sex: Male

DRUGS (1)
  1. CARBIDOPA + LEVODOPA [Suspect]
     Indication: PARKINSON'S DISEASE
     Dosage: (CR 25/100 MG)

REACTIONS (7)
  - DRUG DISPENSING ERROR [None]
  - FATIGUE [None]
  - GAIT DISTURBANCE [None]
  - INCORRECT DRUG DOSAGE FORM ADMINISTERED [None]
  - INSOMNIA [None]
  - MOTOR DYSFUNCTION [None]
  - ROAD TRAFFIC ACCIDENT [None]
